FAERS Safety Report 10954673 (Version 1)
Quarter: 2015Q1

REPORT INFORMATION
  Report Type: Report from Study
  Country: CA (occurrence: CA)
  Receive Date: 20150325
  Receipt Date: 20150325
  Transmission Date: 20150721
  Serious: Yes (Other)
  Sender: FDA-Public Use
  Company Number: CA-JNJFOC-20141212101

PATIENT
  Age: 30 Year
  Sex: Male
  Weight: 74 kg

DRUGS (5)
  1. SALOFALK [Concomitant]
     Active Substance: MESALAMINE
     Dosage: HOURS OF SLEEP
     Route: 065
  2. IMURAN [Concomitant]
     Active Substance: AZATHIOPRINE
     Route: 065
  3. REMICADE [Suspect]
     Active Substance: INFLIXIMAB
     Indication: COLITIS ULCERATIVE
     Route: 042
     Dates: start: 20140611, end: 20150319
  4. TRAZADOL [Concomitant]
     Dosage: HOURS OF SLEEP
     Route: 065
  5. PENTASA [Concomitant]
     Active Substance: MESALAMINE
     Route: 065

REACTIONS (10)
  - Weight decreased [Unknown]
  - Colectomy total [Unknown]
  - Diarrhoea haemorrhagic [Unknown]
  - Diarrhoea [Unknown]
  - Insomnia [Unknown]
  - Gastrointestinal disorder [Unknown]
  - Malaise [Unknown]
  - Influenza [Recovered/Resolved]
  - Drug effect decreased [Unknown]
  - Anxiety [Unknown]

NARRATIVE: CASE EVENT DATE: 2014
